FAERS Safety Report 18382631 (Version 1)
Quarter: 2020Q4

REPORT INFORMATION
  Report Type: Spontaneous
  Country: GB (occurrence: GB)
  Receive Date: 20201014
  Receipt Date: 20201014
  Transmission Date: 20210114
  Serious: Yes (Other)
  Sender: FDA-Public Use
  Company Number: GB-AMGEN-GBRSP2020163737

PATIENT
  Sex: Female

DRUGS (3)
  1. CINACALCET HCL [Suspect]
     Active Substance: CINACALCET HYDROCHLORIDE
     Dosage: 30 MILLIGRAM, TID
     Route: 065
  2. CINACALCET HCL [Suspect]
     Active Substance: CINACALCET HYDROCHLORIDE
     Dosage: 30 MILLIGRAM, BID
     Route: 065
  3. CINACALCET HCL [Suspect]
     Active Substance: CINACALCET HYDROCHLORIDE
     Indication: FAMILIAL HYPOCALCIURIC HYPERCALCAEMIA
     Dosage: 30 MILLIGRAM, QD
     Route: 065

REACTIONS (3)
  - Pancreatitis relapsing [Recovered/Resolved]
  - Therapeutic response unexpected [Unknown]
  - Off label use [Unknown]
